FAERS Safety Report 9286668 (Version 1)
Quarter: 2012Q4

REPORT INFORMATION
  Report Type: Spontaneous
  Country: US (occurrence: None)
  Receive Date: 20120926
  Receipt Date: 20120926
  Transmission Date: 20130627
  Serious: Yes (Hospitalization, Other)
  Sender: FDA-Public Use
  Company Number: LMI-2012-00290

PATIENT
  Age: 23 Year
  Sex: Female
  Weight: 53.52 kg

DRUGS (2)
  1. ABLAVAR [Suspect]
     Indication: VASCULAR MALFORMATION PERIPHERAL
     Route: 042
     Dates: start: 20120911, end: 20120911
  2. ABLAVAR [Suspect]
     Indication: ANGIOGRAM
     Route: 042
     Dates: start: 20120911, end: 20120911

REACTIONS (13)
  - Abdominal pain upper [None]
  - Chest pain [None]
  - Flushing [None]
  - Hyperhidrosis [None]
  - Hypoaesthesia [None]
  - Hypoaesthesia [None]
  - Nausea [None]
  - Feeling hot [None]
  - Hypertonic bladder [None]
  - Abdominal pain upper [None]
  - Back pain [None]
  - Uterine spasm [None]
  - Tachycardia [None]
